FAERS Safety Report 22053576 (Version 1)
Quarter: 2023Q1

REPORT INFORMATION
  Report Type: Spontaneous
  Country: US (occurrence: US)
  Receive Date: 20230302
  Receipt Date: 20230302
  Transmission Date: 20230417
  Serious: No
  Sender: FDA-Public Use
  Company Number: US-Fresenius Medical Care Renal Therapies Group-FMC-2302-000197

PATIENT
  Age: 65 Year
  Sex: Male
  Weight: 73.5 kg

DRUGS (3)
  1. DELFLEX WITH DEXTROSE 1.5% LOW MAGNESIUM LOW CALCIUM [Suspect]
     Active Substance: CALCIUM CHLORIDE\DEXTROSE\MAGNESIUM CHLORIDE\SODIUM CHLORIDE\SODIUM LACTATE
     Indication: End stage renal disease
     Dosage: ,EXCHANGES 4, FILL VOLUME 2200 ML, DWELL TIME 1.5 HOURS, LAST FILL N/A, DAYTIME DWELL N/A.
     Route: 033
  2. DELFLEX WITH DEXTROSE 2.5% LOW MAGNESIUM LOW CALCIUM [Suspect]
     Active Substance: CALCIUM CHLORIDE\DEXTROSE\MAGNESIUM CHLORIDE\SODIUM CHLORIDE\SODIUM LACTATE
     Indication: End stage renal disease
     Dosage: , EXCHANGES 4, FILL VOLUME 2200 ML, DWELL TIME 1.5 HOURS, LAST FILL N/A, DAYTIME DWELL N/A.
     Route: 033
  3. DELFLEX WITH DEXTROSE 4.25% LOW MAGNESIUM LOW CALCIUM [Suspect]
     Active Substance: CALCIUM CHLORIDE\DEXTROSE\MAGNESIUM CHLORIDE\SODIUM CHLORIDE\SODIUM LACTATE
     Indication: End stage renal disease
     Dosage: , EXCHANGES 4, FILL VOLUME 2200 ML, DWELL TIME 1.5 HOURS, LAST FILL N/A, DAYTIME DWELL N/A.
     Route: 033

REACTIONS (1)
  - Inguinal hernia [Recovered/Resolved]
